FAERS Safety Report 6385420-0 (Version None)
Quarter: 2009Q4

REPORT INFORMATION
  Report Type: 
  Country: None (occurrence: None)
  Receive Date: 20091002
  Receipt Date: 20081215
  Transmission Date: 20100525
  Serious: No
  Sender: FDA-Public Use
  Company Number: US-ASTRAZENECA-2008UW18421

PATIENT
  Age: 61 Year
  Sex: Female
  Weight: 102.1 kg

DRUGS (2)
  1. ARIMIDEX [Suspect]
     Indication: BREAST CANCER
     Route: 048
     Dates: start: 20060301
  2. VITAMINS [Concomitant]

REACTIONS (6)
  - DEPRESSED MOOD [None]
  - DYSPHONIA [None]
  - MYOCLONUS [None]
  - THYROID NEOPLASM [None]
  - VITREOUS FLOATERS [None]
  - WEIGHT INCREASED [None]
